FAERS Safety Report 14692143 (Version 1)
Quarter: 2018Q1

REPORT INFORMATION
  Report Type: Spontaneous
  Country: ES (occurrence: ES)
  Receive Date: 20180329
  Receipt Date: 20180329
  Transmission Date: 20180509
  Serious: Yes (Death, Hospitalization, Congenital Anomaly)
  Sender: FDA-Public Use
  Company Number: ES-CIPLA LTD.-2018ES12707

PATIENT
  Sex: Male

DRUGS (3)
  1. DEPAKINE                           /00228501/ [Suspect]
     Active Substance: VALPROIC ACID
     Dosage: UNK
     Route: 064
  2. LEVETIRACETAM. [Suspect]
     Active Substance: LEVETIRACETAM
     Dosage: UNK
     Route: 064
  3. LUMINAL                            /00023201/ [Suspect]
     Active Substance: PHENOBARBITAL SODIUM
     Dosage: UNK
     Route: 064

REACTIONS (2)
  - Neural tube defect [Fatal]
  - Foetal exposure during pregnancy [Fatal]

NARRATIVE: CASE EVENT DATE: 20170525
